FAERS Safety Report 8169282-7 (Version None)
Quarter: 2012Q1

REPORT INFORMATION
  Report Type: 
  Country: None (occurrence: None)
  Receive Date: 20120228
  Receipt Date: 20111123
  Transmission Date: 20120608
  Serious: Yes (Other)
  Sender: FDA-Public Use
  Company Number: US-RANBAXY-2011US-50581

PATIENT

DRUGS (5)
  1. VERAPAMIL [Suspect]
     Indication: ATRIAL FIBRILLATION
     Dosage: UNK, UNK
     Route: 065
  2. LOSARTAN POTASSIUM [Suspect]
     Indication: HYPERTENSION
     Dosage: 12.5MG
     Route: 048
     Dates: start: 20110907
  3. LISINOPRIL [Suspect]
     Indication: HYPERTENSION
     Dosage: 10 MG,UNK
     Route: 048
     Dates: start: 20110805, end: 20110907
  4. LOSARTAN POTASSIUM [Suspect]
     Dosage: 25 MG, DAILY
     Route: 048
     Dates: start: 20110922
  5. LOSARTAN POTASSIUM [Suspect]
     Dosage: 50 MG, UNK
     Route: 048

REACTIONS (20)
  - ARTHRALGIA [None]
  - URINARY INCONTINENCE [None]
  - GAIT DISTURBANCE [None]
  - OROPHARYNGEAL PAIN [None]
  - BLOOD PRESSURE ABNORMAL [None]
  - DRUG HYPERSENSITIVITY [None]
  - DIARRHOEA [None]
  - COUGH [None]
  - MUSCULOSKELETAL PAIN [None]
  - SLEEP DISORDER [None]
  - DRY EYE [None]
  - PHARYNGEAL OEDEMA [None]
  - ATRIAL FIBRILLATION [None]
  - ABDOMINAL PAIN [None]
  - DRY THROAT [None]
  - RASH ERYTHEMATOUS [None]
  - GASTROINTESTINAL TRACT IRRITATION [None]
  - MUSCLE SPASMS [None]
  - FIBROMYALGIA [None]
  - DECREASED APPETITE [None]
